FAERS Safety Report 4728796-X (Version None)
Quarter: 2005Q3

REPORT INFORMATION
  Report Type: 
  Country: None (occurrence: None)
  Receive Date: 20050729
  Receipt Date: 20050712
  Transmission Date: 20060218
  Serious: Yes (Death, Other)
  Sender: FDA-Public Use
  Company Number: US-BRISTOL-MYERS SQUIBB COMPANY-13035746

PATIENT
  Age: 19 Year
  Sex: Male

DRUGS (2)
  1. ABILIFY [Suspect]
     Indication: PSYCHOTIC DISORDER
  2. ABILIFY [Suspect]
     Indication: SCHIZOPHRENIA

REACTIONS (2)
  - COMPLETED SUICIDE [None]
  - SCHIZOPHRENIA [None]
